FAERS Safety Report 5536656-X (Version None)
Quarter: 2007Q4

REPORT INFORMATION
  Report Type: 
  Country: None (occurrence: None)
  Receive Date: 20071206
  Receipt Date: 20070723
  Transmission Date: 20080405
  Serious: Yes (Other)
  Sender: FDA-Public Use
  Company Number: US-AMGEN-US231737

PATIENT
  Sex: Male
  Weight: 76.7 kg

DRUGS (4)
  1. ENBREL [Suspect]
     Indication: RHEUMATOID ARTHRITIS
     Route: 058
     Dates: start: 20050302, end: 20070430
  2. ENBREL [Suspect]
     Indication: ANKYLOSING SPONDYLITIS
  3. CALCIUM [Concomitant]
     Route: 065
  4. DIGOXIN [Concomitant]
     Route: 065

REACTIONS (3)
  - ANAL CANCER [None]
  - ASTHENIA [None]
  - BASAL CELL CARCINOMA [None]
